FAERS Safety Report 6890563-9 (Version None)
Quarter: 2010Q3

REPORT INFORMATION
  Report Type: 
  Country: None (occurrence: None)
  Receive Date: 20100731
  Receipt Date: 20081125
  Transmission Date: 20110219
  Serious: No
  Sender: FDA-Public Use
  Company Number: US-PFIZER INC-2008100515

PATIENT
  Sex: Male
  Weight: 83.636 kg

DRUGS (10)
  1. LIPITOR [Suspect]
     Indication: BLOOD CHOLESTEROL INCREASED
  2. NIASPAN [Suspect]
     Indication: HIGH DENSITY LIPOPROTEIN DECREASED
  3. FISH OIL [Suspect]
     Indication: HIGH DENSITY LIPOPROTEIN DECREASED
     Dates: end: 20081121
  4. NOVOLOG [Concomitant]
  5. LANTUS [Concomitant]
  6. TARKA [Concomitant]
  7. CLONIDINE [Concomitant]
  8. FUROSEMIDE [Concomitant]
  9. COZAAR [Concomitant]
  10. IRON [Concomitant]
     Indication: ANAEMIA

REACTIONS (4)
  - HIGH DENSITY LIPOPROTEIN DECREASED [None]
  - HOT FLUSH [None]
  - RENAL DISORDER [None]
  - SKIN DISORDER [None]
